FAERS Safety Report 7760259-X (Version None)
Quarter: 2011Q3

REPORT INFORMATION
  Report Type: 
  Country: None (occurrence: None)
  Receive Date: 20110919
  Receipt Date: 20110907
  Transmission Date: 20111222
  Serious: Yes (Other)
  Sender: FDA-Public Use
  Company Number: ZA-GLAXOSMITHKLINE-B0746234A

PATIENT
  Age: 48 Year
  Sex: Female

DRUGS (1)
  1. SALMETEROL XINAFOATE + FLUTICASONE PROPIONATE [Suspect]
     Indication: ASTHMA
     Route: 055
     Dates: start: 20110701

REACTIONS (3)
  - OROPHARYNGEAL PAIN [None]
  - GLOSSODYNIA [None]
  - ORAL CANDIDIASIS [None]
